APPROVED DRUG PRODUCT: CLADRIBINE
Active Ingredient: CLADRIBINE
Strength: 1MG/ML
Dosage Form/Route: INJECTABLE;INJECTION
Application: A200510 | Product #001
Applicant: PHARMOBEDIENT CONSULTING LLC
Approved: Oct 6, 2011 | RLD: No | RS: No | Type: DISCN